FAERS Safety Report 17473599 (Version 1)
Quarter: 2020Q1

REPORT INFORMATION
  Report Type: Report from Study
  Country: CA (occurrence: CA)
  Receive Date: 20200228
  Receipt Date: 20200228
  Transmission Date: 20200409
  Serious: Yes (Hospitalization, Other)
  Sender: FDA-Public Use
  Company Number: CA-JNJFOC-20190508594

PATIENT
  Age: 57 Year
  Sex: Male

DRUGS (2)
  1. SIMPONI [Suspect]
     Active Substance: GOLIMUMAB
     Indication: ANKYLOSING SPONDYLITIS
     Dosage: STRENGTH = 50 MG
     Route: 058
     Dates: start: 20150822
  2. WARFARIN [Concomitant]
     Active Substance: WARFARIN

REACTIONS (10)
  - Cystitis [Unknown]
  - Product use issue [Unknown]
  - Diarrhoea [Unknown]
  - Cerebrovascular accident [Recovering/Resolving]
  - Off label use [Unknown]
  - Cholecystitis infective [Unknown]
  - Generalised tonic-clonic seizure [Not Recovered/Not Resolved]
  - Dehydration [Unknown]
  - Ankylosing spondylitis [Not Recovered/Not Resolved]
  - International normalised ratio decreased [Recovering/Resolving]

NARRATIVE: CASE EVENT DATE: 20150822
